FAERS Safety Report 16155223 (Version 1)
Quarter: 2019Q2

REPORT INFORMATION
  Report Type: Spontaneous
  Country: US (occurrence: US)
  Receive Date: 20190403
  Receipt Date: 20190403
  Transmission Date: 20190711
  Serious: Yes (Other)
  Sender: FDA-Public Use
  Company Number: US-MYLANLABS-2019M1029660

PATIENT
  Age: 56 Year
  Sex: Female

DRUGS (1)
  1. LITHIUM. [Suspect]
     Active Substance: LITHIUM
     Indication: PRODUCT USED FOR UNKNOWN INDICATION
     Dosage: RECEIVING LITHIUM FOR MORE THAN 20 YEARS
     Route: 065

REACTIONS (4)
  - Fall [Unknown]
  - Tremor [Recovering/Resolving]
  - Nystagmus [Recovering/Resolving]
  - Gait disturbance [Recovering/Resolving]
